FAERS Safety Report 23856525 (Version 2)
Quarter: 2024Q2

REPORT INFORMATION
  Report Type: Spontaneous
  Country: CA (occurrence: CA)
  Receive Date: 20240515
  Receipt Date: 20240606
  Transmission Date: 20240716
  Serious: Yes (Other)
  Sender: FDA-Public Use
  Company Number: CA-PFIZER INC-202400091352

PATIENT

DRUGS (6)
  1. INFLECTRA [Suspect]
     Active Substance: INFLIXIMAB-DYYB
     Indication: Crohn^s disease
     Dosage: 10 MG/KG, WEEKS 0, 2, 6, THEN EVERY 6 WEEKS
     Route: 042
     Dates: start: 20240307
  2. INFLECTRA [Suspect]
     Active Substance: INFLIXIMAB-DYYB
     Dosage: 10 MG/KG (600MG), AFTER 12 WEEKS (PRESCRIBED EVERY 6 WEEKS)
     Route: 042
     Dates: start: 20240530
  3. INFLECTRA [Suspect]
     Active Substance: INFLIXIMAB-DYYB
     Dosage: 10 MG/KG (600MG), AFTER 12 WEEKS (PRESCRIBED EVERY 6 WEEKS)
     Route: 042
     Dates: start: 20240530
  4. INFLECTRA [Suspect]
     Active Substance: INFLIXIMAB-DYYB
     Dosage: 10 MG/KG (600MG), AFTER 12 WEEKS (PRESCRIBED EVERY 6 WEEKS)
     Route: 042
     Dates: start: 20240530
  5. INFLECTRA [Suspect]
     Active Substance: INFLIXIMAB-DYYB
     Dosage: 10 MG/KG (600MG), AFTER 12 WEEKS (PRESCRIBED EVERY 6 WEEKS)
     Route: 042
     Dates: start: 20240530
  6. INFLECTRA [Suspect]
     Active Substance: INFLIXIMAB-DYYB
     Dosage: 10 MG/KG (600MG), AFTER 12 WEEKS (PRESCRIBED EVERY 6 WEEKS)
     Route: 042
     Dates: start: 20240530

REACTIONS (4)
  - Tympanic membrane perforation [Unknown]
  - Ear infection [Not Recovered/Not Resolved]
  - Pharyngitis [Not Recovered/Not Resolved]
  - Rhinitis [Not Recovered/Not Resolved]
